FAERS Safety Report 15638691 (Version 1)
Quarter: 2018Q4

REPORT INFORMATION
  Report Type: Spontaneous
  Country: US (occurrence: US)
  Receive Date: 20181120
  Receipt Date: 20181120
  Transmission Date: 20190205
  Serious: No
  Sender: FDA-Public Use
  Company Number: US-JNJFOC-20180224203

PATIENT
  Sex: Male

DRUGS (17)
  1. ZOFRAN [Concomitant]
     Active Substance: ONDANSETRON HYDROCHLORIDE
  2. ACYCLOVIR. [Concomitant]
     Active Substance: ACYCLOVIR
  3. VITAMIN D [Concomitant]
     Active Substance: CHOLECALCIFEROL
  4. NORVASC [Concomitant]
     Active Substance: AMLODIPINE BESYLATE
  5. MILK OF MAGNESIA [Concomitant]
     Active Substance: MAGNESIUM HYDROXIDE
  6. MULTIVITAMINS [Concomitant]
     Active Substance: VITAMINS
  7. POTASSIUM [Concomitant]
     Active Substance: POTASSIUM
  8. LASIX [Concomitant]
     Active Substance: FUROSEMIDE
  9. TESSALON [Concomitant]
     Active Substance: BENZONATATE
  10. VITAMIN B COMPLEX [Concomitant]
     Active Substance: CYANOCOBALAMIN\DEXPANTHENOL\NIACINAMIDE\PYRIDOXINE HYDROCHLORIDE\RIBOFLAVIN 5^-PHOSPHATE SODIUM\THIAMINE HYDROCHLORIDE\VITAMIN B COMPLEX
  11. IMBRUVICA [Suspect]
     Active Substance: IBRUTINIB
     Indication: NON-HODGKIN^S LYMPHOMA
     Route: 048
     Dates: start: 20170627
  12. ATIVAN [Concomitant]
     Active Substance: LORAZEPAM
  13. FLOMAX [Concomitant]
     Active Substance: TAMSULOSIN HYDROCHLORIDE
  14. ALLOPURINOL. [Concomitant]
     Active Substance: ALLOPURINOL
  15. MIRALAX [Concomitant]
     Active Substance: POLYETHYLENE GLYCOL 3350
  16. LISINOPRIL. [Concomitant]
     Active Substance: LISINOPRIL
  17. TYLENOL [Concomitant]
     Active Substance: ACETAMINOPHEN

REACTIONS (1)
  - Eye infection [Unknown]
